FAERS Safety Report 7415897-0 (Version None)
Quarter: 2011Q2

REPORT INFORMATION
  Report Type: 
  Country: None (occurrence: None)
  Receive Date: 20110414
  Receipt Date: 20110405
  Transmission Date: 20111010
  Serious: Yes (Hospitalization, Other)
  Sender: FDA-Public Use
  Company Number: US-ASTRAZENECA-2009UW05893

PATIENT
  Age: 764 Month
  Sex: Female
  Weight: 72.6 kg

DRUGS (31)
  1. LEVOTHYROXINE [Concomitant]
  2. NEXIUM [Suspect]
     Indication: GASTROOESOPHAGEAL REFLUX DISEASE
     Route: 048
  3. PRILOSEC [Suspect]
     Route: 048
  4. DILANTIN [Suspect]
  5. LAMICTAL [Concomitant]
     Route: 048
     Dates: end: 20100801
  6. OSCAL [Concomitant]
  7. IRON [Concomitant]
  8. SINGULAIR [Concomitant]
  9. ATIVAN [Concomitant]
     Dosage: ATIVAN
  10. ATIVAN [Concomitant]
     Dosage: LORAZEPAM 1 MG  IN THE AFTERNOON, AND THEN 1-2 MG AT NIGHT
  11. ACETAMINOPHEN [Concomitant]
  12. CITRACEL [Concomitant]
  13. SEROQUEL [Interacting]
     Indication: BIPOLAR DISORDER
     Route: 048
     Dates: start: 19970101
  14. NEXIUM [Suspect]
     Route: 048
  15. LAMICTAL [Concomitant]
     Route: 048
     Dates: start: 20100801
  16. LASIX [Concomitant]
  17. CEREFOLIN [Concomitant]
  18. TESSALON [Concomitant]
  19. MULTIPLE VITAMIN [Concomitant]
  20. IMODIUM [Concomitant]
  21. SYNTHROID [Concomitant]
  22. SEROQUEL [Interacting]
     Route: 048
  23. CLARITIN [Concomitant]
  24. ESTRACE [Concomitant]
  25. SEROQUEL [Interacting]
     Route: 048
  26. DILANTIN [Suspect]
     Route: 042
  27. KEPPRA [Concomitant]
  28. NORCO [Concomitant]
  29. ZYRTEC [Concomitant]
  30. UNSPECIFIED MEDICATION [Interacting]
  31. LYRICA [Concomitant]
     Route: 048

REACTIONS (18)
  - DRUG DOSE OMISSION [None]
  - LOWER LIMB FRACTURE [None]
  - TARDIVE DYSKINESIA [None]
  - AMNESIA [None]
  - MENTAL STATUS CHANGES [None]
  - TOXICITY TO VARIOUS AGENTS [None]
  - APHAGIA [None]
  - PARTIAL SEIZURES [None]
  - UNRESPONSIVE TO STIMULI [None]
  - COMMUNICATION DISORDER [None]
  - GRAND MAL CONVULSION [None]
  - CONFUSIONAL STATE [None]
  - HYPOMANIA [None]
  - ENCEPHALITIS [None]
  - BALANCE DISORDER [None]
  - DRUG INTERACTION [None]
  - ENCEPHALOPATHY [None]
  - NASOPHARYNGITIS [None]
